FAERS Safety Report 5762326-9 (Version None)
Quarter: 2008Q2

REPORT INFORMATION
  Report Type: 
  Country: None (occurrence: None)
  Receive Date: 20080609
  Receipt Date: 20080530
  Transmission Date: 20081010
  Serious: Yes (Other)
  Sender: FDA-Public Use
  Company Number: PHHY2008JP09565

PATIENT
  Sex: Female

DRUGS (3)
  1. ZADITEN [Suspect]
     Dosage: 1 MG, QD
     Route: 048
  2. ANTIHYPERTENSIVE DRUGS [Concomitant]
  3. ALEVIATIN [Concomitant]

REACTIONS (2)
  - BLOOD PRESSURE DECREASED [None]
  - LOSS OF CONSCIOUSNESS [None]
